FAERS Safety Report 19367401 (Version 7)
Quarter: 2024Q2

REPORT INFORMATION
  Report Type: Other
  Country: US (occurrence: None)
  Receive Date: 20210603
  Receipt Date: 20240510
  Transmission Date: 20240716
  Serious: Yes (Other)
  Sender: FDA-Public Use
  Company Number: US-ROCHE-2066703

PATIENT
  Age: 68 Year
  Sex: Female

DRUGS (8)
  1. ACTEMRA [Suspect]
     Active Substance: TOCILIZUMAB
     Indication: Rheumatoid arthritis
     Route: 058
  2. ACTEMRA [Suspect]
     Active Substance: TOCILIZUMAB
     Route: 058
  3. ACTEMRA [Suspect]
     Active Substance: TOCILIZUMAB
     Indication: Rheumatoid arthritis
     Dosage: INJECT 162MG SUBCUTANEOUSLY ONCE WEEKLY
     Route: 058
  4. ACTEMRA [Suspect]
     Active Substance: TOCILIZUMAB
     Route: 058
  5. NEURONTIN [Concomitant]
     Active Substance: GABAPENTIN
  6. CYMBALTA [Concomitant]
     Active Substance: DULOXETINE HYDROCHLORIDE
  7. LEXAPRO [Concomitant]
     Active Substance: ESCITALOPRAM OXALATE
  8. ATORVASTATIN [Concomitant]
     Active Substance: ATORVASTATIN

REACTIONS (23)
  - Road traffic accident [Unknown]
  - Pain [Unknown]
  - Back disorder [Unknown]
  - Renal disorder [Unknown]
  - Stress [Unknown]
  - Anxiety [Unknown]
  - Impaired work ability [Unknown]
  - Mood altered [Unknown]
  - Fall [Unknown]
  - Skin discolouration [Unknown]
  - Fatigue [Unknown]
  - Contusion [Unknown]
  - Insomnia [Unknown]
  - Back pain [Unknown]
  - Depression [Unknown]
  - Memory impairment [Unknown]
  - Confusional state [Unknown]
  - Oropharyngeal pain [Unknown]
  - Hypersomnia [Unknown]
  - Hyperhidrosis [Unknown]
  - Hypertension [Unknown]
  - Micturition disorder [Unknown]
  - Dry mouth [Unknown]
